FAERS Safety Report 7075269-8 (Version None)
Quarter: 2010Q4

REPORT INFORMATION
  Report Type: 
  Country: None (occurrence: None)
  Receive Date: 20101030
  Receipt Date: 20100901
  Transmission Date: 20110411
  Serious: No
  Sender: FDA-Public Use
  Company Number: US-WYE-H16078110

PATIENT
  Sex: Male
  Weight: 89.44 kg

DRUGS (9)
  1. PRISTIQ [Suspect]
     Indication: DEPRESSION
     Dates: start: 20090825, end: 20100601
  2. PRISTIQ [Suspect]
     Dosage: UNSPECIFIED DOSE EVERY OTHER DAY
     Dates: start: 20100601
  3. PRISTIQ [Suspect]
     Dosage: UNSPECIFIED DOSE EVERY THIRD DAY
  4. ACETYLSALICYLIC ACID SRT [Concomitant]
  5. PLAVIX [Concomitant]
  6. VYTORIN [Concomitant]
  7. OMEGA-3-ACID ETHYL ESTERS (LOVAZA) [Concomitant]
  8. XANAX [Concomitant]
  9. METOPROLOL [Concomitant]

REACTIONS (4)
  - DIZZINESS [None]
  - DRUG EFFECT DECREASED [None]
  - DRUG WITHDRAWAL SYNDROME [None]
  - MANIA [None]
